FAERS Safety Report 8404312-6 (Version None)
Quarter: 2012Q2

REPORT INFORMATION
  Report Type: 
  Country: None (occurrence: None)
  Receive Date: 20120601
  Receipt Date: 20120530
  Transmission Date: 20120825
  Serious: No
  Sender: FDA-Public Use
  Company Number: US-PFIZER INC-2012040102

PATIENT
  Sex: Male

DRUGS (2)
  1. ARIPIPRAZOLE [Concomitant]
     Dosage: 2 MG, UNK DAILY
     Route: 048
  2. TORISEL [Suspect]
     Indication: RENAL CELL CARCINOMA
     Dosage: 25 MG EVERY WEEK
     Route: 042
     Dates: start: 20111109

REACTIONS (2)
  - RASH GENERALISED [None]
  - RASH PRURITIC [None]
